FAERS Safety Report 6537953-1 (Version None)
Quarter: 2009Q4

REPORT INFORMATION
  Report Type: 
  Country: None (occurrence: None)
  Receive Date: 20091229
  Receipt Date: 20091124
  Transmission Date: 20100525
  Serious: No
  Sender: FDA-Public Use
  Company Number: 1000010371

PATIENT
  Age: 45 Year
  Sex: Male

DRUGS (4)
  1. BYSTOLIC [Suspect]
     Indication: HYPERTENSION
     Dosage: 5 MG (5 MG,1 IN 1 D),ORAL; 10 MG (10MG, 1 IN 1D) ; 15 MG (15 MG, 1 IN 1 D); 20 MG  (20MG, 1 IN 1 D)
     Route: 048
     Dates: start: 20060101, end: 20070101
  2. BYSTOLIC [Suspect]
     Indication: HYPERTENSION
     Dosage: 5 MG (5 MG,1 IN 1 D),ORAL; 10 MG (10MG, 1 IN 1D) ; 15 MG (15 MG, 1 IN 1 D); 20 MG  (20MG, 1 IN 1 D)
     Route: 048
     Dates: start: 20070101, end: 20090101
  3. BYSTOLIC [Suspect]
     Indication: HYPERTENSION
     Dosage: 5 MG (5 MG,1 IN 1 D),ORAL; 10 MG (10MG, 1 IN 1D) ; 15 MG (15 MG, 1 IN 1 D); 20 MG  (20MG, 1 IN 1 D)
     Route: 048
     Dates: start: 20090501, end: 20090801
  4. BYSTOLIC [Suspect]
     Indication: HYPERTENSION
     Dosage: 5 MG (5 MG,1 IN 1 D),ORAL; 10 MG (10MG, 1 IN 1D) ; 15 MG (15 MG, 1 IN 1 D); 20 MG  (20MG, 1 IN 1 D)
     Route: 048
     Dates: start: 20090801

REACTIONS (2)
  - ABNORMAL DREAMS [None]
  - HEART RATE INCREASED [None]
